FAERS Safety Report 12526582 (Version 8)
Quarter: 2019Q1

REPORT INFORMATION
  Report Type: Spontaneous
  Country: US (occurrence: US)
  Receive Date: 20160705
  Receipt Date: 20190321
  Transmission Date: 20190417
  Serious: Yes (Life-Threatening, Congenital Anomaly, Other)
  Sender: FDA-Public Use
  Company Number: PHHY2015US133871

PATIENT
  Sex: Male

DRUGS (3)
  1. ZOFRAN [Suspect]
     Active Substance: ONDANSETRON HYDROCHLORIDE
     Indication: FOETAL EXPOSURE DURING PREGNANCY
     Route: 064
  2. PENTASA [Concomitant]
     Active Substance: MESALAMINE
     Indication: FOETAL EXPOSURE DURING PREGNANCY
     Route: 064
  3. ZOFRAN [Suspect]
     Active Substance: ONDANSETRON HYDROCHLORIDE
     Indication: FOETAL EXPOSURE DURING PREGNANCY
     Dosage: MOTHER DOSE: 4 MG, UNK
     Route: 064

REACTIONS (34)
  - Fallot^s tetralogy [Unknown]
  - Right ventricular enlargement [Unknown]
  - Infrequent bowel movements [Unknown]
  - Pyrexia [Unknown]
  - Ventricular septal defect [Unknown]
  - Right ventricle outflow tract obstruction [Unknown]
  - Pleural effusion [Unknown]
  - Bundle branch block right [Unknown]
  - Pericardial effusion [Unknown]
  - Injury [Unknown]
  - Cough [Unknown]
  - Heart rate increased [Unknown]
  - Hyperthermia [Unknown]
  - Foetal exposure during pregnancy [Unknown]
  - Right ventricular dilatation [Unknown]
  - Arthralgia [Unknown]
  - Insomnia [Unknown]
  - Congenital tracheomalacia [Unknown]
  - Atrial septal defect [Unknown]
  - Congenital anomaly [Unknown]
  - Left-to-right cardiac shunt [Unknown]
  - Right aortic arch [Unknown]
  - Pulmonary valve stenosis [Unknown]
  - Bronchiolitis [Unknown]
  - Extrasystoles [Unknown]
  - Rhinorrhoea [Unknown]
  - Cardiomegaly [Unknown]
  - Atelectasis [Unknown]
  - Tachycardia [Unknown]
  - Cardiac murmur [Unknown]
  - Laryngeal cleft [Unknown]
  - Pulmonary valve incompetence [Unknown]
  - Abdominal discomfort [Unknown]
  - Abdominal pain upper [Unknown]
